FAERS Safety Report 7622424-1 (Version None)
Quarter: 2011Q3

REPORT INFORMATION
  Report Type: 
  Country: None (occurrence: None)
  Receive Date: 20110718
  Receipt Date: 20110718
  Transmission Date: 20111222
  Serious: Yes (Hospitalization, Other)
  Sender: FDA-Public Use
  Company Number: None

PATIENT
  Age: 44 Year
  Sex: Female
  Weight: 65.7716 kg

DRUGS (1)
  1. MIRENA [Suspect]
     Indication: MENORRHAGIA
     Dates: start: 20100901, end: 20110101

REACTIONS (6)
  - WEIGHT INCREASED [None]
  - CYSTITIS [None]
  - BACK PAIN [None]
  - HEADACHE [None]
  - FATIGUE [None]
  - ACNE [None]
